FAERS Safety Report 11216721 (Version 3)
Quarter: 2015Q3

REPORT INFORMATION
  Report Type: Report from Study
  Country: US (occurrence: US)
  Receive Date: 20150624
  Receipt Date: 20150713
  Transmission Date: 20151125
  Serious: Yes (Other)
  Sender: FDA-Public Use
  Company Number: US-GILEAD-2015-0159749

PATIENT
  Age: 57 Year
  Sex: Male

DRUGS (1)
  1. LEDIPASVIR/SOFOSBUVIR [Suspect]
     Active Substance: LEDIPASVIR\SOFOSBUVIR
     Indication: CHRONIC HEPATITIS C
     Dosage: 1 DF, UNK
     Route: 048

REACTIONS (5)
  - Peptic ulcer [Unknown]
  - Irritable bowel syndrome [Unknown]
  - Eructation [Unknown]
  - Migraine [Unknown]
  - Nausea [Unknown]
